FAERS Safety Report 6380358-7 (Version None)
Quarter: 2009Q3

REPORT INFORMATION
  Report Type: 
  Country: None (occurrence: None)
  Receive Date: 20090929
  Receipt Date: 20090923
  Transmission Date: 20100115
  Serious: Yes (Hospitalization, Other)
  Sender: FDA-Public Use
  Company Number: US-BAYER-US-2006-000224

PATIENT
  Age: 51 Year
  Sex: Female
  Weight: 86 kg

DRUGS (10)
  1. CLIMARA [Suspect]
     Indication: MENOPAUSAL SYMPTOMS
     Dosage: .5 MG/D, CONT
     Route: 062
  2. PREMPRO [Suspect]
     Indication: MENOPAUSAL SYMPTOMS
     Dosage: .625/2.5 MG/D, 1X/DAY
     Dates: start: 19980402
  3. PROVERA [Suspect]
     Indication: MENOPAUSAL SYMPTOMS
     Dosage: UNIT DOSE: 2.5 MG
     Route: 048
  4. PREFEST [Suspect]
     Indication: MENOPAUSAL SYMPTOMS
     Dosage: UNK, UNK
     Dates: start: 20000607
  5. ACTIVELLA [Suspect]
     Indication: MENOPAUSAL SYMPTOMS
     Dosage: UNK, UNK
     Dates: start: 20010222
  6. MEDROXYPROGESTERONE ACETATE [Suspect]
     Indication: MENOPAUSAL SYMPTOMS
  7. ATARAX [Concomitant]
     Indication: URTICARIA
     Dosage: UNK, UNK
     Dates: start: 19680101, end: 20050101
  8. HYDROXYZINE HCL [Concomitant]
     Indication: URTICARIA
     Dosage: TOTAL DAILY DOSE: 40 MG
     Route: 048
  9. METFORMIN HCL [Concomitant]
     Indication: TYPE 2 DIABETES MELLITUS
     Dosage: TOTAL DAILY DOSE: 1000 MG
     Route: 048
     Dates: start: 20041206
  10. LEVOTHYROXINE SODIUM [Concomitant]
     Indication: HYPOTHYROIDISM
     Route: 048
     Dates: start: 20080117

REACTIONS (14)
  - ABDOMINAL PAIN [None]
  - ANXIETY [None]
  - BENIGN BREAST NEOPLASM [None]
  - BREAST CANCER STAGE II [None]
  - BREAST MASS [None]
  - DEFORMITY [None]
  - HOT FLUSH [None]
  - NAUSEA [None]
  - PAIN [None]
  - POST PROCEDURAL CELLULITIS [None]
  - SEROMA [None]
  - VAGINAL CYST [None]
  - VAGINAL HAEMORRHAGE [None]
  - VOMITING [None]
